FAERS Safety Report 8045744-8 (Version None)
Quarter: 2012Q1

REPORT INFORMATION
  Report Type: 
  Country: None (occurrence: None)
  Receive Date: 20120113
  Receipt Date: 20120109
  Transmission Date: 20120608
  Serious: Yes (Hospitalization, Other)
  Sender: FDA-Public Use
  Company Number: PHEH2011US06069

PATIENT
  Sex: Female
  Weight: 102.95 kg

DRUGS (3)
  1. OMEPRAZOLE [Concomitant]
     Dosage: 20 MG, QD
     Route: 048
  2. GILENYA [Suspect]
     Indication: MULTIPLE SCLEROSIS
     Dosage: 0.5 MG, QD
     Route: 048
     Dates: start: 20110510
  3. M.V.I. [Concomitant]
     Dosage: 1 DF, QD
     Route: 048

REACTIONS (14)
  - DYSPNOEA [None]
  - ELECTROCARDIOGRAM QT PROLONGED [None]
  - CHEST PAIN [None]
  - BLOOD PRESSURE INCREASED [None]
  - BLOOD POTASSIUM DECREASED [None]
  - NAUSEA [None]
  - TROPONIN INCREASED [None]
  - NEUTROPHIL COUNT INCREASED [None]
  - RASH [None]
  - DIARRHOEA [None]
  - HYPOAESTHESIA [None]
  - ABDOMINAL PAIN [None]
  - ELECTROCARDIOGRAM T WAVE AMPLITUDE DECREASED [None]
  - LYMPHOCYTE COUNT DECREASED [None]
